FAERS Safety Report 13930913 (Version 2)
Quarter: 2017Q4

REPORT INFORMATION
  Report Type: Spontaneous
  Country: US (occurrence: US)
  Receive Date: 20170902
  Receipt Date: 20171004
  Transmission Date: 20180320
  Serious: Yes (Other)
  Sender: FDA-Public Use
  Company Number: US-BAUSCH-BL-2017-025420

PATIENT
  Sex: Female

DRUGS (5)
  1. ATIVAN [Suspect]
     Active Substance: LORAZEPAM
     Indication: ANXIETY
     Route: 065
     Dates: start: 2015
  2. ATIVAN [Suspect]
     Active Substance: LORAZEPAM
     Dosage: THE PATIENT TOOK 1/4 PILL
     Route: 065
     Dates: start: 2017, end: 2017
  3. ATIVAN [Suspect]
     Active Substance: LORAZEPAM
     Dosage: TOOK A HALF (1/2) OF ATIVAN PILL AS AN EXPERIMENT FROM THE NEW BATCH
     Route: 065
     Dates: start: 2017, end: 2017
  4. VALIUM [Suspect]
     Active Substance: DIAZEPAM
     Indication: PRODUCT USED FOR UNKNOWN INDICATION
     Route: 065
  5. ATIVAN [Suspect]
     Active Substance: LORAZEPAM
     Dosage: TOOK 1/4 OF ATIVAN PILL IN THE MORNING, 3HRS LATER, DURING LUNCH AND THE LATE AFTERNOON (ADDING UP T
     Route: 065
     Dates: start: 2017

REACTIONS (12)
  - Insomnia [Recovering/Resolving]
  - Somnolence [Recovering/Resolving]
  - Adverse event [Unknown]
  - Drug intolerance [Unknown]
  - Panic disorder [Recovering/Resolving]
  - Product quality issue [Unknown]
  - Malaise [Recovering/Resolving]
  - Anxiety [Recovering/Resolving]
  - Withdrawal syndrome [Unknown]
  - Hypotension [Unknown]
  - Heart rate increased [Recovering/Resolving]
  - Treatment noncompliance [Unknown]

NARRATIVE: CASE EVENT DATE: 2017
